FAERS Safety Report 5018078-3 (Version None)
Quarter: 2006Q2

REPORT INFORMATION
  Report Type: 
  Country: None (occurrence: None)
  Receive Date: 20060526
  Receipt Date: 20060517
  Transmission Date: 20061013
  Serious: Yes (Life-Threatening)
  Sender: FDA-Public Use
  Company Number: T200600460

PATIENT
  Age: 72 Year
  Sex: Male
  Weight: 55.2 kg

DRUGS (1)
  1. OPTIRAY 320 [Suspect]
     Indication: COMPUTERISED TOMOGRAM
     Dosage: 100 ML, SINGLE, INTRAVENOUS
     Route: 042
     Dates: start: 20060501, end: 20060501

REACTIONS (7)
  - ANAPHYLACTIC SHOCK [None]
  - COLD SWEAT [None]
  - CONTRAST MEDIA REACTION [None]
  - FEELING HOT [None]
  - OXYGEN SATURATION DECREASED [None]
  - PERIPHERAL COLDNESS [None]
  - SNEEZING [None]
